FAERS Safety Report 6906539-9 (Version None)
Quarter: 2010Q3

REPORT INFORMATION
  Report Type: 
  Country: None (occurrence: None)
  Receive Date: 20100804
  Receipt Date: 20100729
  Transmission Date: 20110219
  Serious: No
  Sender: FDA-Public Use
  Company Number: US-WYE-H15957010

PATIENT
  Sex: Female
  Weight: 86.26 kg

DRUGS (7)
  1. PHOSPHOLINE IODIDE [Suspect]
     Indication: GLAUCOMA
     Dosage: 0.125%, TWO DROPS IN LEFT EYE
     Route: 047
  2. PHOSPHOLINE IODIDE [Suspect]
     Dosage: STRENGTH UNKNOWN, ONE DROP IN LEFT EYE
     Route: 047
     Dates: end: 19920101
  3. PHOSPHOLINE IODIDE [Suspect]
     Dosage: STRENGTH UNKNOWN, ONE DROP IN LEFT EYE
     Route: 047
  4. TIMOPTIC [Concomitant]
     Dosage: DOSE UNKNOWN
     Route: 065
  5. DIAMOX SRC [Concomitant]
     Dosage: DOSE UNKNOWN
     Route: 065
  6. XALATAN [Concomitant]
     Dosage: DOSE UNKNOWN
     Route: 065
  7. COSOPT [Concomitant]
     Dosage: DOSE UNKNOWN
     Route: 065

REACTIONS (2)
  - DRUG INEFFECTIVE [None]
  - ENDOMETRIAL DISORDER [None]
